FAERS Safety Report 6856071-6 (Version None)
Quarter: 2010Q3

REPORT INFORMATION
  Report Type: 
  Country: None (occurrence: None)
  Receive Date: 20100719
  Receipt Date: 20100709
  Transmission Date: 20110219
  Serious: Yes (Hospitalization, Other)
  Sender: FDA-Public Use
  Company Number: US-JNJFOC-20100703613

PATIENT
  Sex: Male
  Weight: 66.91 kg

DRUGS (7)
  1. SANDOZ FENTANYL TRANSDERMAL SYSTEM [Suspect]
     Indication: PAIN
     Route: 062
  2. SANDOZ FENTANYL TRANSDERMAL SYSTEM [Suspect]
     Route: 062
  3. SANDOZ FENTANYL TRANSDERMAL SYSTEM [Suspect]
     Route: 062
  4. TRAZODONE HYDROCHLORIDE [Concomitant]
     Indication: SLEEP DISORDER
     Route: 048
  5. VALIUM [Concomitant]
     Indication: MUSCLE RELAXANT THERAPY
     Route: 048
  6. FLONASE [Concomitant]
     Indication: MULTIPLE ALLERGIES
     Dosage: 2 PUFFS
     Route: 045
  7. DILAUDID [Concomitant]
     Indication: BREAKTHROUGH PAIN
     Dosage: 8 TO 4 MG
     Route: 048

REACTIONS (9)
  - ADVERSE EVENT [None]
  - BLOOD CHOLESTEROL INCREASED [None]
  - CHRONIC OBSTRUCTIVE PULMONARY DISEASE [None]
  - HYPERTENSION [None]
  - PAIN [None]
  - PRODUCT ADHESION ISSUE [None]
  - SPINAL CORD COMPRESSION [None]
  - WEIGHT FLUCTUATION [None]
  - WRONG TECHNIQUE IN DRUG USAGE PROCESS [None]
